FAERS Safety Report 5297575-X (Version None)
Quarter: 2007Q2

REPORT INFORMATION
  Report Type: 
  Country: None (occurrence: None)
  Receive Date: 20070416
  Receipt Date: 20070402
  Transmission Date: 20071010
  Serious: Yes (Other)
  Sender: FDA-Public Use
  Company Number: PHEH2007US03974

PATIENT
  Age: 82 Year
  Sex: Female

DRUGS (11)
  1. ZELNORM [Suspect]
     Indication: CONSTIPATION
     Dosage: 6 MG, BID
     Route: 048
     Dates: end: 20070402
  2. LOTREL [Concomitant]
  3. THYROID TAB [Concomitant]
  4. EVISTA [Concomitant]
  5. SINGULAIR [Concomitant]
  6. SPIRIVA ^PFIZER^ [Concomitant]
  7. ADVAIR DISKUS 100/50 [Concomitant]
  8. ALLEGRA [Concomitant]
  9. WELLBUTRIN [Concomitant]
  10. ZOCOR [Concomitant]
  11. PREVACID [Concomitant]

REACTIONS (4)
  - AORTIC VALVE INCOMPETENCE [None]
  - CAROTID ARTERY OCCLUSION [None]
  - HYPERTENSION [None]
  - MITRAL VALVE INCOMPETENCE [None]
